FAERS Safety Report 18544938 (Version 2)
Quarter: 2020Q4

REPORT INFORMATION
  Report Type: Report from Study
  Country: None (occurrence: IT)
  Receive Date: 20201125
  Receipt Date: 20201231
  Transmission Date: 20210114
  Serious: Yes (Death, Hospitalization)
  Sender: FDA-Public Use
  Company Number: IT-ABBVIE-20K-083-3660823-00

PATIENT
  Age: 76 Year
  Sex: Female

DRUGS (2)
  1. DUODOPA [Suspect]
     Active Substance: CARBIDOPA\LEVODOPA
     Indication: PARKINSON^S DISEASE
     Dosage: TOTAL DAILY DOSE (MG): 1142; PUMP SETTING: MD: 4,5+3; CR: 3,1 (16H); ED: 1,5
     Route: 050
     Dates: start: 20191018
  2. DUODOPA [Suspect]
     Active Substance: CARBIDOPA\LEVODOPA

REACTIONS (4)
  - Head injury [Unknown]
  - Coma [Not Recovered/Not Resolved]
  - Traumatic haematoma [Fatal]
  - Fall [Unknown]

NARRATIVE: CASE EVENT DATE: 202011
